FAERS Safety Report 6226280-8 (Version None)
Quarter: 2009Q2

REPORT INFORMATION
  Report Type: 
  Country: None (occurrence: None)
  Receive Date: 20090612
  Receipt Date: 20090512
  Transmission Date: 20091009
  Serious: No
  Sender: FDA-Public Use
  Company Number: US-ABBOTT-09P-163-0572813-00

PATIENT
  Sex: Male

DRUGS (2)
  1. HUMIRA [Suspect]
     Indication: PSORIATIC ARTHROPATHY
     Dates: start: 20090226
  2. HUMIRA [Suspect]

REACTIONS (6)
  - DISCOMFORT [None]
  - DRUG INEFFECTIVE [None]
  - JOINT SWELLING [None]
  - PAIN [None]
  - SWELLING [None]
  - X-RAY LIMB ABNORMAL [None]
